FAERS Safety Report 14404193 (Version 1)
Quarter: 2018Q1

REPORT INFORMATION
  Report Type: Spontaneous
  Country: DE (occurrence: DE)
  Receive Date: 20180117
  Receipt Date: 20180117
  Transmission Date: 20180509
  Serious: Yes (Hospitalization, Other)
  Sender: FDA-Public Use
  Company Number: DE-SHIRE-DE201736921

PATIENT

DRUGS (2)
  1. TPN [Concomitant]
     Active Substance: AMINO ACIDS\DEXTROSE\ELECTROLYTES NOS\SOYBEAN OIL
     Indication: PRODUCT USED FOR UNKNOWN INDICATION
     Dosage: UNK, UNKNOWN
     Route: 051
  2. REVESTIVE [Suspect]
     Active Substance: TEDUGLUTIDE
     Indication: SHORT-BOWEL SYNDROME
     Dosage: DAILY DOSE: 0.28 ML MILLILITRE(S) EVERY DAY
     Route: 058
     Dates: start: 20160822, end: 20170414

REACTIONS (5)
  - Ileus [Recovering/Resolving]
  - Gastrointestinal obstruction [Recovered/Resolved]
  - Device related infection [Recovered/Resolved]
  - Gastrointestinal fistula [Recovering/Resolving]
  - Thrombosis [Recovered/Resolved with Sequelae]

NARRATIVE: CASE EVENT DATE: 20170414
